FAERS Safety Report 9440548 (Version 4)
Quarter: 2013Q4

REPORT INFORMATION
  Report Type: Spontaneous
  Country: JP (occurrence: JP)
  Receive Date: 20130805
  Receipt Date: 20131025
  Transmission Date: 20140711
  Serious: Yes (Life-Threatening, Hospitalization, Other)
  Sender: FDA-Public Use
  Company Number: JP-PFIZER INC-2013222937

PATIENT
  Age: 37 Year
  Sex: Female
  Weight: 70 kg

DRUGS (14)
  1. LYRICA [Suspect]
     Indication: FIBROMYALGIA
     Dosage: UNK MG, UNK
     Route: 048
     Dates: start: 201207
  2. LYRICA [Suspect]
     Indication: ANALGESIC THERAPY
     Dosage: 2250 MG, 1X/DAY
     Route: 048
     Dates: start: 20121201, end: 20121201
  3. TRAMCET [Suspect]
     Indication: ANALGESIC THERAPY
     Dosage: UNK DF, UNK
  4. TRAMCET [Suspect]
     Dosage: 66 DF, 1X/DAY
     Route: 048
     Dates: start: 20121201, end: 20121201
  5. CYMBALTA [Suspect]
     Indication: ANALGESIC THERAPY
     Dosage: UNK DF, UNK
     Route: 048
  6. CYMBALTA [Suspect]
     Dosage: 920 MG, 1X/DAY
     Route: 048
     Dates: start: 20121201, end: 20121201
  7. LANDSEN [Suspect]
     Indication: ANALGESIC THERAPY
     Dosage: UNK DF, UNK
     Route: 048
  8. LANDSEN [Suspect]
     Dosage: 15 MG, 1X/DAY
     Route: 048
     Dates: start: 20121201, end: 20121201
  9. NAUZELIN [Concomitant]
     Indication: ANALGESIC THERAPY
     Dosage: UNK DF, UNK
     Route: 048
     Dates: start: 201207
  10. NAUZELIN [Concomitant]
     Dosage: 2 DF, 1X/DAY
     Route: 048
     Dates: start: 20121201, end: 20121201
  11. CELECOX [Concomitant]
     Indication: ANALGESIC THERAPY
     Dosage: UNK DF, UNK
     Route: 048
  12. CELECOX [Concomitant]
     Dosage: 2 DF, 1X/DAY
     Route: 048
     Dates: start: 20121201, end: 20121201
  13. SALAZOSULFAPYRIDINE [Concomitant]
     Indication: ANALGESIC THERAPY
     Dosage: UNK DF, UNK
     Route: 048
     Dates: start: 201207
  14. SALAZOSULFAPYRIDINE [Concomitant]
     Dosage: 3 DF, 1X/DAY
     Route: 048
     Dates: start: 20121201, end: 20121201

REACTIONS (10)
  - Intentional overdose [Recovered/Resolved]
  - Toxicity to various agents [Recovered/Resolved]
  - Suicide attempt [Recovered/Resolved]
  - Coma [Recovered/Resolved]
  - Aspiration [Recovered/Resolved]
  - Pneumonia aspiration [Recovered/Resolved]
  - Respiratory depression [Recovered/Resolved]
  - Liver disorder [Recovered/Resolved]
  - Drug ineffective [Unknown]
  - Therapeutic response unexpected [Unknown]
